FAERS Safety Report 5525519-1 (Version None)
Quarter: 2007Q4

REPORT INFORMATION
  Report Type: 
  Country: None (occurrence: None)
  Receive Date: 20071126
  Receipt Date: 20071119
  Transmission Date: 20080405
  Serious: Yes (Death, Hospitalization)
  Sender: FDA-Public Use
  Company Number: A0695173A

PATIENT
  Age: 31 Year
  Sex: Male

DRUGS (4)
  1. PAXIL [Suspect]
     Indication: DEPRESSION
     Route: 048
  2. COCAINE [Concomitant]
  3. MARIJUANA [Concomitant]
  4. ASTHMA MEDICATION [Concomitant]

REACTIONS (5)
  - CONVULSION [None]
  - DEPRESSION [None]
  - DRUG ABUSE [None]
  - INAPPROPRIATE AFFECT [None]
  - PALPITATIONS [None]
